FAERS Safety Report 18377939 (Version 2)
Quarter: 2021Q1

REPORT INFORMATION
  Report Type: Spontaneous
  Country: JP (occurrence: JP)
  Receive Date: 20201013
  Receipt Date: 20210113
  Transmission Date: 20210419
  Serious: Yes (Death, Other)
  Sender: FDA-Public Use
  Company Number: JP-JAZZ-2020-JP-013313

PATIENT
  Age: 63 Year
  Sex: Female
  Weight: 62.2 kg

DRUGS (1)
  1. DEFITELIO [Suspect]
     Active Substance: DEFIBROTIDE SODIUM
     Indication: VENOOCCLUSIVE LIVER DISEASE
     Dosage: 25 MG/KG/DAY
     Route: 042
     Dates: start: 20200818, end: 20200825

REACTIONS (2)
  - Genital haemorrhage [Recovered/Resolved]
  - Peritonitis [Fatal]

NARRATIVE: CASE EVENT DATE: 2020
